FAERS Safety Report 6706181-9 (Version None)
Quarter: 2010Q2

REPORT INFORMATION
  Report Type: 
  Country: None (occurrence: None)
  Receive Date: 20100503
  Receipt Date: 20100426
  Transmission Date: 20101027
  Serious: Yes (Other)
  Sender: FDA-Public Use
  Company Number: US-B.I. PHARMACEUTICALS,INC./RIDGEFIELD-2010-BP-04147BP

PATIENT
  Sex: Male

DRUGS (3)
  1. SPIRIVA [Suspect]
     Indication: EMPHYSEMA
     Dosage: 18 MCG
     Route: 055
     Dates: start: 20090101
  2. ADVAIR DISKUS 100/50 [Suspect]
     Indication: EMPHYSEMA
  3. VENTOLIN [Suspect]
     Indication: EMPHYSEMA

REACTIONS (1)
  - LUNG NEOPLASM MALIGNANT [None]
